FAERS Safety Report 10861156 (Version 1)
Quarter: 2015Q1

REPORT INFORMATION
  Report Type: Spontaneous
  Country: US (occurrence: None)
  Receive Date: 20150218
  Receipt Date: 20150218
  Transmission Date: 20150721
  Serious: Yes (Hospitalization)
  Sender: FDA-Public Use
  Company Number: None

PATIENT
  Age: 49 Year
  Sex: Male
  Weight: 108 kg

DRUGS (5)
  1. HYDROCHLOROTHIAZIDE (HYDRODIURIL) [Concomitant]
  2. OMEPRAZOLE (PRILOSEC) [Concomitant]
  3. GLIMEPIRIDE (AMARYL) [Concomitant]
  4. LISINOPRIL. [Suspect]
     Active Substance: LISINOPRIL
     Indication: HYPERTENSION
     Dosage: 1 TAB, QD, ORAL
     Route: 048
  5. SILDENAFIL (VIAGRA) [Concomitant]

REACTIONS (4)
  - Dysphagia [None]
  - Drooling [None]
  - Angioedema [None]
  - Speech disorder [None]

NARRATIVE: CASE EVENT DATE: 20140518
